FAERS Safety Report 7789337-6 (Version None)
Quarter: 2011Q3

REPORT INFORMATION
  Report Type: 
  Country: None (occurrence: None)
  Receive Date: 20110930
  Receipt Date: 20110926
  Transmission Date: 20111222
  Serious: Yes (Other)
  Sender: FDA-Public Use
  Company Number: US-GLAXOSMITHKLINE-A0946474A

PATIENT
  Sex: Male

DRUGS (1)
  1. AVANDIA [Suspect]
     Indication: DIABETES MELLITUS
     Route: 065
     Dates: start: 20050101

REACTIONS (4)
  - HEART TRANSPLANT [None]
  - CARDIAC DISORDER [None]
  - RENAL TRANSPLANT [None]
  - RENAL IMPAIRMENT [None]
